FAERS Safety Report 12158757 (Version 1)
Quarter: 2016Q1

REPORT INFORMATION
  Report Type: Spontaneous
  Country: US (occurrence: US)
  Receive Date: 20160308
  Receipt Date: 20160308
  Transmission Date: 20160526
  Serious: No
  Sender: FDA-Public Use
  Company Number: US-JNJFOC-20160201308

PATIENT
  Sex: Female
  Weight: 54.43 kg

DRUGS (2)
  1. TYLENOL ARTHRITIS PAIN [Suspect]
     Active Substance: ACETAMINOPHEN
     Indication: PAIN
     Route: 048
  2. TYLENOL ARTHRITIS PAIN [Suspect]
     Active Substance: ACETAMINOPHEN
     Route: 048

REACTIONS (2)
  - Foreign body [Recovered/Resolved]
  - Product difficult to swallow [Unknown]
